FAERS Safety Report 10201222 (Version 1)
Quarter: 2014Q2

REPORT INFORMATION
  Report Type: Spontaneous
  Country: US (occurrence: US)
  Receive Date: 20140528
  Receipt Date: 20140528
  Transmission Date: 20141212
  Serious: No
  Sender: FDA-Public Use
  Company Number: US-BAYER-2014-078186

PATIENT
  Sex: Male

DRUGS (1)
  1. XOFIGO [Suspect]
     Dosage: UNK

REACTIONS (2)
  - Nausea [None]
  - Vomiting [None]
